FAERS Safety Report 9012278 (Version 2)
Quarter: 2013Q1

REPORT INFORMATION
  Report Type: Spontaneous
  Country: JP (occurrence: None)
  Receive Date: 20121231
  Receipt Date: 20130305
  Transmission Date: 20140127
  Serious: Yes (Death)
  Sender: FDA-Public Use
  Company Number: TCI2012A07286

PATIENT
  Age: 78 Year
  Sex: Female

DRUGS (3)
  1. METACT [Suspect]
     Indication: TYPE 2 DIABETES MELLITUS
     Route: 048
     Dates: start: 20110525, end: 20110624
  2. GLACTIV (SITAGLIPTIN PHOSPHATE MONOHYDRATE) [Concomitant]
  3. MYSLEE (ZOLPIDEM TARTRATE) [Concomitant]

REACTIONS (1)
  - Respiratory failure [None]
